FAERS Safety Report 23473590 (Version 1)
Quarter: 2024Q1

REPORT INFORMATION
  Report Type: Spontaneous
  Country: RU (occurrence: RU)
  Receive Date: 20240203
  Receipt Date: 20240203
  Transmission Date: 20240409
  Serious: Yes (Other)
  Sender: FDA-Public Use
  Company Number: RU-IPSEN Group, Research and Development-2024-00594

PATIENT
  Age: 15 Year
  Sex: Female

DRUGS (4)
  1. PALOVAROTENE [Suspect]
     Active Substance: PALOVAROTENE
     Indication: Fibrodysplasia ossificans progressiva
     Dosage: 10 MG 2 TIMES PER DAY
     Route: 048
     Dates: start: 20231218
  2. PALOVAROTENE [Suspect]
     Active Substance: PALOVAROTENE
     Dosage: MG PER DAY
     Route: 048
     Dates: start: 20240113
  3. FOLIC ACID [Concomitant]
     Active Substance: FOLIC ACID
     Indication: Anaemia
     Dosage: 1 MG 1 TIME PER DAY
     Route: 048
     Dates: start: 20231225
  4. TOFACITINIB [Concomitant]
     Active Substance: TOFACITINIB
     Indication: Ankylosing spondylitis
     Dosage: 2 TIMES PER DAY
     Route: 048
     Dates: start: 20220321

REACTIONS (9)
  - Blister [Not Recovered/Not Resolved]
  - Skin exfoliation [Unknown]
  - Pain in extremity [Unknown]
  - Pruritus [Unknown]
  - Skin exfoliation [Not Recovered/Not Resolved]
  - Dry skin [Not Recovered/Not Resolved]
  - Hyperaemia [Not Recovered/Not Resolved]
  - Skin maceration [Not Recovered/Not Resolved]
  - Pruritus [Not Recovered/Not Resolved]

NARRATIVE: CASE EVENT DATE: 20231220
